FAERS Safety Report 21566543 (Version 1)
Quarter: 2022Q4

REPORT INFORMATION
  Report Type: Spontaneous
  Country: US (occurrence: None)
  Receive Date: 20221107
  Receipt Date: 20221107
  Transmission Date: 20230113
  Serious: Yes (Hospitalization)
  Sender: FDA-Public Use
  Company Number: None

PATIENT
  Age: 52 Year
  Sex: Male
  Weight: 116 kg

DRUGS (9)
  1. GLYXAMBI [Suspect]
     Active Substance: EMPAGLIFLOZIN\LINAGLIPTIN
     Indication: Type 2 diabetes mellitus
     Dosage: FREQUENCY : DAILY;?
     Route: 048
     Dates: start: 20200501, end: 20221103
  2. allopurinol 300mg BID [Concomitant]
  3. ASPIRIN [Concomitant]
     Active Substance: ASPIRIN
  4. furosemide 20mg daily [Concomitant]
  5. lantus 8 units nightly [Concomitant]
  6. LOSARTAN [Concomitant]
     Active Substance: LOSARTAN
  7. nifedipine 60mg XL daily [Concomitant]
  8. pregabalin 150mg BID [Concomitant]
  9. crestor 20mg daily [Concomitant]

REACTIONS (1)
  - Pancreatitis [None]

NARRATIVE: CASE EVENT DATE: 20221103
